FAERS Safety Report 9328053 (Version 1)
Quarter: 2013Q2

REPORT INFORMATION
  Report Type: Spontaneous
  Country: US (occurrence: US)
  Receive Date: 20130604
  Receipt Date: 20130604
  Transmission Date: 20140414
  Serious: Yes (Other)
  Sender: FDA-Public Use
  Company Number: US-SANOFI-AVENTIS-2012SA045465

PATIENT
  Age: 54 Year
  Sex: Male
  Weight: 106.59 kg

DRUGS (4)
  1. LANTUS [Suspect]
     Indication: TYPE 2 DIABETES MELLITUS
     Dosage: DOSE:16 UNIT(S)
     Route: 058
     Dates: start: 2011
  2. SOLOSTAR [Suspect]
     Indication: TYPE 2 DIABETES MELLITUS
     Dates: start: 2011
  3. HMG COA REDUCTASE INHIBITORS [Concomitant]
     Indication: HYPERCHOLESTEROLAEMIA
     Dates: start: 2012, end: 2012
  4. ASPIRIN [Concomitant]

REACTIONS (4)
  - Sinusitis [Unknown]
  - Myalgia [Unknown]
  - Pruritus [Unknown]
  - Injection site pain [Unknown]
